FAERS Safety Report 7486380 (Version 2)
Quarter: 2023Q2

REPORT INFORMATION
  Report Type: Spontaneous
  Country: JP (occurrence: JP)
  Receive Date: 20100718
  Receipt Date: 20230613
  Transmission Date: 20230722
  Serious: Yes (Hospitalization, Other)
  Sender: FDA-Public Use
  Company Number: JP-BRISTOL-MYERS SQUIBB COMPANY-14450407

PATIENT
  Age: 75 Year
  Sex: Female

DRUGS (1)
  1. PRAVASTATIN SODIUM [Suspect]
     Active Substance: PRAVASTATIN SODIUM
     Indication: Prophylaxis
     Dosage: 10 MG, UNK
     Dates: start: 2000

REACTIONS (3)
  - Autoimmune hepatitis [Recovering/Resolving]
  - Hepatic cirrhosis [Recovering/Resolving]
  - Hepatic failure [Recovering/Resolving]
